FAERS Safety Report 10137062 (Version 1)
Quarter: 2014Q2

REPORT INFORMATION
  Report Type: Spontaneous
  Country: RS (occurrence: RS)
  Receive Date: 20140429
  Receipt Date: 20140429
  Transmission Date: 20141212
  Serious: Yes (Hospitalization, Other)
  Sender: FDA-Public Use
  Company Number: RS-BAYER-2014-058976

PATIENT
  Age: 71 Year
  Sex: Male
  Weight: 55 kg

DRUGS (7)
  1. ACETYLSALICYLIC ACID (} 100 MG) [Suspect]
     Indication: ANTIPLATELET THERAPY
  2. CLOPIDOGREL [Interacting]
     Indication: ANTIPLATELET THERAPY
     Dosage: UNK
  3. MIDAZOLAM [Concomitant]
     Indication: GENERAL ANAESTHESIA
     Dosage: 0.07 MG/KG
  4. FENTANYL [Concomitant]
     Indication: GENERAL ANAESTHESIA
     Dosage: 5 MCG/KG
  5. SUCCINYLCHOLINE CHLORIDE [Concomitant]
     Indication: GENERAL ANAESTHESIA
     Dosage: 1.5 MG/KG
  6. ROCURONIUM [Concomitant]
     Indication: GENERAL ANAESTHESIA
     Dosage: 1 MG/KG
  7. ETOMIDATE [Concomitant]
     Indication: GENERAL ANAESTHESIA
     Dosage: 0.3 MG/KG

REACTIONS (10)
  - Acute myocardial infarction [None]
  - Haematemesis [None]
  - Acute myocardial infarction [None]
  - Cardiac failure [None]
  - Cyanosis [None]
  - Intestinal ischaemia [None]
  - Left ventricular hypertrophy [None]
  - Arrhythmia [Recovered/Resolved]
  - Blood pressure decreased [None]
  - Metabolic acidosis [None]
